FAERS Safety Report 13797992 (Version 3)
Quarter: 2017Q4

REPORT INFORMATION
  Report Type: Spontaneous
  Country: US (occurrence: US)
  Receive Date: 20170727
  Receipt Date: 20171006
  Transmission Date: 20180320
  Serious: No
  Sender: FDA-Public Use
  Company Number: US-PFIZER INC-2017323972

PATIENT
  Sex: Female

DRUGS (4)
  1. METHOTREXATE SODIUM. [Suspect]
     Active Substance: METHOTREXATE SODIUM
     Dosage: UNK
  2. ENBREL [Suspect]
     Active Substance: ETANERCEPT
     Dosage: UNK
  3. NORVASC [Suspect]
     Active Substance: AMLODIPINE BESYLATE
     Dosage: 5 MG, DAILY
  4. XELJANZ XR [Suspect]
     Active Substance: TOFACITINIB CITRATE
     Dosage: 11 MG, UNK

REACTIONS (13)
  - Rash pruritic [Recovered/Resolved]
  - Tenderness [Unknown]
  - Swelling [Unknown]
  - Gait disturbance [Unknown]
  - Joint swelling [Unknown]
  - Chest pain [Unknown]
  - Drug ineffective [Unknown]
  - Tendon disorder [Unknown]
  - Condition aggravated [Unknown]
  - Arthralgia [Unknown]
  - Foot deformity [Unknown]
  - Nodule [Unknown]
  - Synovitis [Unknown]

NARRATIVE: CASE EVENT DATE: 201702
